FAERS Safety Report 8199628-5 (Version None)
Quarter: 2012Q1

REPORT INFORMATION
  Report Type: 
  Country: None (occurrence: None)
  Receive Date: 20120311
  Receipt Date: 20120308
  Transmission Date: 20120608
  Serious: No
  Sender: FDA-Public Use
  Company Number: US-PFIZER INC-2012062658

PATIENT
  Sex: Female
  Weight: 55.329 kg

DRUGS (3)
  1. TOVIAZ [Suspect]
     Indication: HYPERTONIC BLADDER
     Dosage: 4 MG, 1X/DAY
     Route: 048
     Dates: start: 20120201, end: 20120308
  2. PEPCID [Concomitant]
     Dosage: UNK
  3. PREMARIN [Concomitant]
     Dosage: UNK

REACTIONS (3)
  - HYPOAESTHESIA [None]
  - CONSTIPATION [None]
  - DRY MOUTH [None]
